FAERS Safety Report 4796861-7 (Version None)
Quarter: 2005Q4

REPORT INFORMATION
  Report Type: 
  Country: None (occurrence: None)
  Receive Date: 20051006
  Receipt Date: 20051006
  Transmission Date: 20060501
  Serious: No
  Sender: FDA-Public Use
  Company Number: None

PATIENT
  Age: 54 Year
  Sex: Female
  Weight: 100 kg

DRUGS (1)
  1. ZOMETA [Suspect]
     Indication: BONE PAIN
     Dosage: SQ; MONTHLY
     Route: 058
     Dates: start: 20041129

REACTIONS (3)
  - BLOOD CREATININE INCREASED [None]
  - INTERNATIONAL NORMALISED RATIO INCREASED [None]
  - RENAL FAILURE ACUTE [None]
